FAERS Safety Report 6114921-5 (Version None)
Quarter: 2009Q1

REPORT INFORMATION
  Report Type: 
  Country: None (occurrence: None)
  Receive Date: 20090313
  Receipt Date: 20090311
  Transmission Date: 20090719
  Serious: Yes (Death, Other)
  Sender: FDA-Public Use
  Company Number: PHHY2009CA04963

PATIENT

DRUGS (1)
  1. DIOVAN [Suspect]
     Dosage: 80 MG
     Route: 048
     Dates: start: 20081203, end: 20081225

REACTIONS (2)
  - DEATH [None]
  - HEPATIC CANCER METASTATIC [None]
